FAERS Safety Report 11109375 (Version 1)
Quarter: 2015Q2

REPORT INFORMATION
  Report Type: Spontaneous
  Country: DE (occurrence: DE)
  Receive Date: 20150513
  Receipt Date: 20150513
  Transmission Date: 20150821
  Serious: Yes (Death, Other)
  Sender: FDA-Public Use
  Company Number: DE-PFIZER INC-2015158028

PATIENT
  Age: 20 Year
  Sex: Female
  Weight: 53 kg

DRUGS (2)
  1. SERTRALIN PFIZER [Suspect]
     Active Substance: SERTRALINE HYDROCHLORIDE
     Indication: DEPRESSION
     Dosage: 50 MG, 1X/DAY
     Route: 048
     Dates: start: 20140730, end: 20140808
  2. TAVOR [Concomitant]
     Active Substance: LORAZEPAM
     Indication: DEPRESSION
     Dosage: 2.5 MG, 1X/DAY
     Route: 048
     Dates: start: 20140730, end: 20140808

REACTIONS (1)
  - Completed suicide [Fatal]

NARRATIVE: CASE EVENT DATE: 20140808
